FAERS Safety Report 8372818-4 (Version None)
Quarter: 2012Q2

REPORT INFORMATION
  Report Type: 
  Country: None (occurrence: None)
  Receive Date: 20120521
  Receipt Date: 20120515
  Transmission Date: 20120825
  Serious: Yes (Other)
  Sender: FDA-Public Use
  Company Number: PL-SANOFI-AVENTIS-2012SA034352

PATIENT
  Sex: Female
  Weight: 72 kg

DRUGS (1)
  1. ARAVA [Suspect]
     Route: 048

REACTIONS (3)
  - DYSGEUSIA [None]
  - SALIVARY HYPERSECRETION [None]
  - POLYNEUROPATHY [None]
